FAERS Safety Report 6670708-6 (Version None)
Quarter: 2010Q2

REPORT INFORMATION
  Report Type: 
  Country: None (occurrence: None)
  Receive Date: 20100407
  Receipt Date: 20091028
  Transmission Date: 20101027
  Serious: Yes (Other)
  Sender: FDA-Public Use
  Company Number: CO-BAYER-201012989LA

PATIENT
  Age: 70 Year
  Sex: Female

DRUGS (1)
  1. NEXAVAR [Suspect]
     Indication: HEPATIC NEOPLASM MALIGNANT
     Route: 048
     Dates: start: 20090601, end: 20090721

REACTIONS (2)
  - EJECTION FRACTION DECREASED [None]
  - FATIGUE [None]
